FAERS Safety Report 9336516 (Version 1)
Quarter: 2013Q2

REPORT INFORMATION
  Report Type: Spontaneous
  Country: US (occurrence: US)
  Receive Date: 20130607
  Receipt Date: 20130607
  Transmission Date: 20140414
  Serious: No
  Sender: FDA-Public Use
  Company Number: US-PFIZER INC-2013169909

PATIENT
  Age: 74 Year
  Sex: Male

DRUGS (11)
  1. INLYTA [Suspect]
     Indication: RENAL CELL CARCINOMA
     Dosage: 5 MG, UNK
  2. AFINITOR [Concomitant]
     Dosage: UNK
  3. ALLOPURINOL [Concomitant]
     Dosage: UNK
  4. AMMONIUM LACTATE [Concomitant]
     Dosage: UNK
  5. ASPIRIN [Concomitant]
     Dosage: UNK
  6. BYSTOLIC [Concomitant]
     Dosage: UNK
  7. CLINDAMYCIN HYDROCHLORIDE [Concomitant]
     Dosage: UNK
  8. CLOBETASOL PROPIONATE [Concomitant]
     Dosage: UNK
  9. COLACE [Concomitant]
     Dosage: UNK
  10. GABAPENTIN [Concomitant]
     Dosage: UNK
  11. GLIMEPIRIDE [Concomitant]
     Dosage: UNK

REACTIONS (3)
  - Dysphonia [Unknown]
  - Diarrhoea [Unknown]
  - Weight decreased [Unknown]
